FAERS Safety Report 12301070 (Version 7)
Quarter: 2017Q3

REPORT INFORMATION
  Report Type: Report from Study
  Country: US (occurrence: US)
  Receive Date: 20160425
  Receipt Date: 20170925
  Transmission Date: 20171127
  Serious: Yes (Hospitalization, Other)
  Sender: FDA-Public Use
  Company Number: US-ACTELION-A-NJ2016-135003

PATIENT
  Age: 59 Year
  Sex: Female
  Weight: 70.3 kg

DRUGS (3)
  1. ADCIRCA [Concomitant]
     Active Substance: TADALAFIL
  2. OPSUMIT [Suspect]
     Active Substance: MACITENTAN
     Indication: PULMONARY ARTERIAL HYPERTENSION
     Dosage: 10 MG, QD
     Route: 048
     Dates: start: 20150805
  3. WARFARIN [Concomitant]
     Active Substance: WARFARIN

REACTIONS (11)
  - Intervertebral disc protrusion [Unknown]
  - Back pain [Unknown]
  - Hypersomnia [Unknown]
  - Seizure [Unknown]
  - Syncope [Unknown]
  - Headache [Unknown]
  - Limb injury [Unknown]
  - Rotator cuff repair [Unknown]
  - Hypotension [Unknown]
  - Road traffic accident [Unknown]
  - Loss of consciousness [Unknown]

NARRATIVE: CASE EVENT DATE: 20170511
